FAERS Safety Report 16834561 (Version 3)
Quarter: 2019Q4

REPORT INFORMATION
  Report Type: Report from Study
  Country: FR (occurrence: FR)
  Receive Date: 20190920
  Receipt Date: 20191028
  Transmission Date: 20200122
  Serious: Yes (Hospitalization)
  Sender: FDA-Public Use
  Company Number: FR-JNJFOC-20190925850

PATIENT
  Age: 79 Year
  Sex: Male
  Weight: 75 kg

DRUGS (11)
  1. IBRUTINIB [Suspect]
     Active Substance: IBRUTINIB
     Route: 048
     Dates: start: 20190712
  2. IBRUTINIB [Suspect]
     Active Substance: IBRUTINIB
     Indication: WALDENSTROM^S MACROGLOBULINAEMIA
     Route: 048
     Dates: start: 20151214, end: 20190704
  3. LERCAN [Concomitant]
     Active Substance: LERCANIDIPINE
     Indication: HYPERTENSION
     Dosage: 10 MG, QD
     Route: 048
     Dates: start: 201901
  4. PREVISCAN                          /00789001/ [Concomitant]
     Active Substance: FLUINDIONE
     Indication: THROMBOSIS PROPHYLAXIS
     Dosage: 22.5 MG, QD
     Route: 048
  5. ALFUZOSINE                         /00975301/ [Concomitant]
     Active Substance: ALFUZOSIN
     Indication: PROSTATISM
     Dosage: 10 MG, QD
     Route: 048
     Dates: start: 20171201
  6. BACTRIM [Concomitant]
     Active Substance: SULFAMETHOXAZOLE\TRIMETHOPRIM
     Dates: start: 20190429, end: 20190623
  7. HEMIGOXINE [Concomitant]
     Active Substance: DIGOXIN
     Indication: ATRIAL FIBRILLATION
     Dosage: 125 MG, QD
     Route: 048
     Dates: start: 20161013
  8. BISOPROLOL [Concomitant]
     Active Substance: BISOPROLOL
     Indication: HYPERTENSION
  9. CHIBRO-PROSCAR [Concomitant]
     Active Substance: FINASTERIDE
     Indication: PROSTATISM
     Dosage: 1 TABLET, QD
     Route: 048
     Dates: start: 20160801
  10. BISOPROLOL [Concomitant]
     Active Substance: BISOPROLOL
     Indication: ATRIAL FIBRILLATION
     Dosage: 10 MG, QD
     Route: 048
     Dates: start: 20160802
  11. REPAGLINIDE. [Concomitant]
     Active Substance: REPAGLINIDE
     Indication: DIABETES MELLITUS
     Dosage: 3 MG, QD
     Route: 048
     Dates: start: 20180406

REACTIONS (2)
  - Stasis dermatitis [Recovered/Resolved]
  - Erysipelas [Recovered/Resolved]

NARRATIVE: CASE EVENT DATE: 20190701
